FAERS Safety Report 24601273 (Version 2)
Quarter: 2024Q4

REPORT INFORMATION
  Report Type: Spontaneous
  Country: FR (occurrence: FR)
  Receive Date: 20241111
  Receipt Date: 20241220
  Transmission Date: 20250115
  Serious: Yes (Hospitalization)
  Sender: ACCORD
  Company Number: None

PATIENT
  Age: 70 Year
  Sex: Male

DRUGS (10)
  1. PRAVASTATIN SODIUM [Suspect]
     Active Substance: PRAVASTATIN SODIUM
     Indication: Cardiovascular event prophylaxis
     Dates: start: 20170811, end: 20240913
  2. CEFEPIME [Suspect]
     Active Substance: CEFEPIME HYDROCHLORIDE
     Indication: Antibiotic prophylaxis
     Dates: start: 20240908, end: 20240913
  3. ACETAMINOPHEN [Suspect]
     Active Substance: ACETAMINOPHEN
     Indication: Pyrexia
     Dates: start: 20240908, end: 20240913
  4. TROPATEPINE HYDROCHLORIDE [Suspect]
     Active Substance: TROPATEPINE HYDROCHLORIDE
     Indication: Prophylaxis
     Dosage: STRENGTH: 10 MG
     Dates: start: 20220920, end: 20240913
  5. LOXAPINE [Suspect]
     Active Substance: LOXAPINE
     Indication: Psychotic disorder
     Dates: start: 20220920, end: 20240913
  6. RISPERIDONE [Suspect]
     Active Substance: RISPERIDONE
     Indication: Psychotic disorder
     Dates: start: 20220920, end: 20240913
  7. VORTIOXETINE [Suspect]
     Active Substance: VORTIOXETINE
     Indication: Psychotic disorder
     Dosage: 15 MG, FILM-COATED TABLET
     Dates: start: 20240120, end: 20240913
  8. ARIPIPRAZOLE [Concomitant]
     Active Substance: ARIPIPRAZOLE
     Dosage: STRENGTH: 400 MG, POWDER AND SOLVENT FOR PROLONGED-RELEASE?SUSPENSION FOR INJECTION
     Dates: start: 20230822
  9. PRAZEPAM [Concomitant]
     Active Substance: PRAZEPAM
     Dates: start: 20231227
  10. ACETAMINOPHEN [Suspect]
     Active Substance: ACETAMINOPHEN
     Indication: Pyrexia
     Dates: start: 20240915, end: 20240916

REACTIONS (3)
  - Acute kidney injury [Not Recovered/Not Resolved]
  - Rhabdomyolysis [Recovered/Resolved]
  - Hepatic cytolysis [Recovered/Resolved]

NARRATIVE: CASE EVENT DATE: 20240913
